FAERS Safety Report 8410189-5 (Version None)
Quarter: 2012Q2

REPORT INFORMATION
  Report Type: 
  Country: None (occurrence: None)
  Receive Date: 20120605
  Receipt Date: 20120530
  Transmission Date: 20120825
  Serious: Yes (Hospitalization, Disabling)
  Sender: FDA-Public Use
  Company Number: PHEH2012US008188

PATIENT
  Sex: Male

DRUGS (1)
  1. GLEEVEC [Suspect]
     Indication: CHRONIC MYELOID LEUKAEMIA
     Dosage: 400 MG, DAILY
     Route: 048
     Dates: start: 20111020, end: 20120416

REACTIONS (4)
  - PAIN IN EXTREMITY [None]
  - ARTHRALGIA [None]
  - HYPOKINESIA [None]
  - BACK PAIN [None]
